FAERS Safety Report 5195600-8 (Version None)
Quarter: 2007Q1

REPORT INFORMATION
  Report Type: 
  Country: None (occurrence: None)
  Receive Date: 20070102
  Receipt Date: 20061221
  Transmission Date: 20070707
  Serious: Yes (Life-Threatening)
  Sender: FDA-Public Use
  Company Number: GB-AVENTIS-200616586EU

PATIENT
  Age: 97 Year
  Sex: Female

DRUGS (5)
  1. INDAPAMIDE [Suspect]
     Indication: HYPERTENSION
     Route: 048
     Dates: end: 20061122
  2. AMIODARONE HCL [Concomitant]
     Dates: end: 20061122
  3. AMLODIPINE [Concomitant]
  4. LEVOTHYROXINE SODIUM [Concomitant]
  5. OMEPRAZOLE [Concomitant]

REACTIONS (1)
  - VENTRICULAR TACHYCARDIA [None]
